FAERS Safety Report 16325903 (Version 2)
Quarter: 2020Q1

REPORT INFORMATION
  Report Type: Spontaneous
  Country: RU (occurrence: RU)
  Receive Date: 20190517
  Receipt Date: 20200214
  Transmission Date: 20200409
  Serious: Yes (Other)
  Sender: FDA-Public Use
  Company Number: RU-ASTRAZENECA-2019SE72546

PATIENT
  Age: 67 Year
  Sex: Male

DRUGS (12)
  1. ENOXAPARIN [Concomitant]
     Active Substance: ENOXAPARIN
     Route: 058
  2. ATORVASTATIN [Concomitant]
     Active Substance: ATORVASTATIN
  3. ENALAPRIL [Concomitant]
     Active Substance: ENALAPRIL
  4. EPLERENONE. [Concomitant]
     Active Substance: EPLERENONE
  5. TICAGRELOR. [Suspect]
     Active Substance: TICAGRELOR
     Indication: ACUTE CORONARY SYNDROME
     Dosage: LOADING DOSE 180MG
     Route: 048
  6. ASPIRIN. [Concomitant]
     Active Substance: ASPIRIN
  7. NITROGLYCERIN. [Concomitant]
     Active Substance: NITROGLYCERIN
     Indication: HYPERTENSION
     Dosage: 5000 U
  8. ASPIRIN. [Concomitant]
     Active Substance: ASPIRIN
     Dosage: 500 MG
  9. TICAGRELOR. [Suspect]
     Active Substance: TICAGRELOR
     Indication: ACUTE CORONARY SYNDROME
     Route: 048
  10. CARVEDILOL. [Concomitant]
     Active Substance: CARVEDILOL
  11. HEPARIN [Concomitant]
     Active Substance: HEPARIN SODIUM
     Dosage: 5000 U
     Route: 040
  12. MORPHINE [Concomitant]
     Active Substance: MORPHINE
     Indication: ANALGESIC THERAPY
     Dosage: 5000 U
     Route: 042

REACTIONS (1)
  - Myocardial infarction [Unknown]
